FAERS Safety Report 4759964-9 (Version None)
Quarter: 2005Q3

REPORT INFORMATION
  Report Type: 
  Country: None (occurrence: None)
  Receive Date: 20050831
  Receipt Date: 20050816
  Transmission Date: 20060218
  Serious: Yes (Other)
  Sender: FDA-Public Use
  Company Number: USA040773633

PATIENT
  Age: 74 Year
  Sex: Female
  Weight: 49 kg

DRUGS (7)
  1. FORTEO [Suspect]
     Indication: OSTEOPOROSIS
     Dosage: 20 UG AT BEDTIME
     Dates: start: 20040423
  2. BENICAL [Concomitant]
  3. WARFARIN [Concomitant]
  4. MOBIC [Concomitant]
  5. CALTRATE 600 PLUS VITAMIN D [Concomitant]
  6. MULTI-VITAMIN [Concomitant]
  7. FOSAMAX [Concomitant]

REACTIONS (11)
  - ASTHENIA [None]
  - ATRIAL FIBRILLATION [None]
  - BACK PAIN [None]
  - BONE PAIN [None]
  - CONDITION AGGRAVATED [None]
  - DIZZINESS [None]
  - HYPERCALCAEMIA [None]
  - INJECTION SITE HAEMORRHAGE [None]
  - INSOMNIA [None]
  - MUSCLE SPASMS [None]
  - PHARMACEUTICAL PRODUCT COMPLAINT [None]
